FAERS Safety Report 7152874-1 (Version None)
Quarter: 2010Q4

REPORT INFORMATION
  Report Type: 
  Country: None (occurrence: None)
  Receive Date: 20101213
  Receipt Date: 20101209
  Transmission Date: 20110411
  Serious: Yes (Death, Other)
  Sender: FDA-Public Use
  Company Number: PHHY2010US74228

PATIENT
  Sex: Male

DRUGS (11)
  1. SANDIMMUNE [Suspect]
     Indication: RENAL TRANSPLANT
     Dosage: TWICE A DAY
     Dates: start: 19860101, end: 19890101
  2. NEORAL [Suspect]
     Indication: RENAL TRANSPLANT
     Dosage: TWICE A DAY
     Dates: start: 19890101, end: 20080101
  3. RAPAMUNE [Suspect]
     Dosage: 1 MG 4X1DAY
     Dates: start: 20080101
  4. RAPAMUNE [Suspect]
     Dosage: 1 MG 2X1DAY
     Dates: start: 20080101
  5. PREDNISONE [Concomitant]
  6. TEGRETOL [Concomitant]
  7. RISPERIDONE [Concomitant]
  8. LABETALOL HCL [Concomitant]
  9. GABAPENTIN [Concomitant]
  10. VALCYTE [Concomitant]
  11. NIFEDIPINE [Concomitant]

REACTIONS (2)
  - DEATH [None]
  - LYMPHADENOPATHY [None]
